FAERS Safety Report 8922183 (Version 1)
Quarter: 2012Q4

REPORT INFORMATION
  Report Type: 
  Country: IL (occurrence: IL)
  Receive Date: 20121123
  Receipt Date: 20121123
  Transmission Date: 20130627
  Serious: Yes (Death)
  Sender: FDA-Public Use
  Company Number: PHHO2012IL016427

PATIENT
  Age: 73 Year
  Sex: Male

DRUGS (6)
  1. DIOVAN [Suspect]
  2. SAXAGLIPTIN [Suspect]
     Indication: TYPE 2 DIABETES MELLITUS
     Dosage: UNK
     Dates: start: 20120215
  3. GLUCO-RITE [Suspect]
     Dosage: UNK
     Dates: end: 20120906
  4. ALDACTONE [Suspect]
  5. FUSID [Suspect]
  6. ASPIRIN [Concomitant]

REACTIONS (1)
  - Cerebrovascular accident [Fatal]
